FAERS Safety Report 7039140-X (Version None)
Quarter: 2010Q4

REPORT INFORMATION
  Report Type: 
  Country: None (occurrence: None)
  Receive Date: 20101012
  Receipt Date: 20100928
  Transmission Date: 20110411
  Serious: Yes (Hospitalization)
  Sender: FDA-Public Use
  Company Number: PHFR2010GB04304

PATIENT
  Sex: Male

DRUGS (10)
  1. CLOZARIL [Suspect]
     Indication: SCHIZOPHRENIA
     Dosage: UNK
     Route: 048
     Dates: start: 20030121
  2. ASPIRIN [Concomitant]
     Dosage: 75 MG, QD
     Route: 048
  3. CLOPIDOGREL [Concomitant]
     Dosage: 75 MG, QD
     Route: 048
  4. OXYBUTYNIN [Concomitant]
     Dosage: 5 MG, BID
     Route: 048
  5. LITHIUM [Concomitant]
     Dosage: 600 MG, QD
     Route: 048
  6. LACTULOSE [Concomitant]
     Dosage: 15 ML, BID
     Route: 048
  7. ATORVASTATIN [Concomitant]
     Dosage: 80 MG, QD
     Route: 048
  8. RAMIPRIL [Concomitant]
     Dosage: 2.5 MG, QD
     Route: 048
  9. ATENOLOL [Concomitant]
     Dosage: 50 MG, QD
     Route: 048
  10. NITROGLYCERIN [Concomitant]
     Dosage: 2 DF, PRN

REACTIONS (8)
  - ACUTE MYOCARDIAL INFARCTION [None]
  - BLOOD PRESSURE DECREASED [None]
  - CORONARY ARTERY DISEASE [None]
  - CREPITATIONS [None]
  - HYPERHIDROSIS [None]
  - HYPOPERFUSION [None]
  - LEFT VENTRICULAR DYSFUNCTION [None]
  - THROMBOSIS [None]
